FAERS Safety Report 12697608 (Version 1)
Quarter: 2016Q3

REPORT INFORMATION
  Report Type: Spontaneous
  Country: US (occurrence: None)
  Receive Date: 20160829
  Receipt Date: 20160829
  Transmission Date: 20161109
  Serious: Yes (Hospitalization)
  Sender: FDA-Public Use
  Company Number: None

PATIENT
  Age: 53 Year
  Sex: Male
  Weight: 75.75 kg

DRUGS (23)
  1. STOOL SOFTNER [Concomitant]
     Active Substance: DOCUSATE SODIUM
  2. OXYCODONE [Concomitant]
     Active Substance: OXYCODONE
  3. DACLATASVIR 60MG BMS [Suspect]
     Active Substance: DACLATASVIR
     Indication: HEPATITIS C
     Route: 048
     Dates: start: 20160430
  4. CALCIUM [Concomitant]
     Active Substance: CALCIUM
  5. HYDROCORTISONE. [Concomitant]
     Active Substance: HYDROCORTISONE
  6. ALUMINIUM + MAGNESIUM HYDROXIDE/DIMETICONE [Concomitant]
  7. LISIX [Concomitant]
  8. ANUSOL NOS [Concomitant]
     Active Substance: BALSAM PERU\BENZYL BENZOATE\BISMUTH HYDROXIDE\BISMUTH SUBGALLATE\HYDROCORTISONE ACETATE\ZINC OXIDE
  9. ZINC SULFATE [Concomitant]
     Active Substance: ZINC SULFATE\ZINC SULFATE ANHYDROUS
  10. XIFAXAN [Concomitant]
     Active Substance: RIFAXIMIN
  11. PAROXETINE. [Concomitant]
     Active Substance: PAROXETINE
  12. BENADRYL [Concomitant]
     Active Substance: DIPHENHYDRAMINE HYDROCHLORIDE
  13. SPIRONOLACTONE. [Concomitant]
     Active Substance: SPIRONOLACTONE
  14. FERROUS SULFATE. [Concomitant]
     Active Substance: FERROUS SULFATE
  15. ATORVASTATIN [Concomitant]
     Active Substance: ATORVASTATIN
  16. PANTOPRAZOLE [Concomitant]
     Active Substance: PANTOPRAZOLE SODIUM
  17. NORCO [Concomitant]
     Active Substance: ACETAMINOPHEN\HYDROCODONE BITARTRATE
  18. HYDROXYZINE [Concomitant]
     Active Substance: HYDROXYZINE\HYDROXYZINE HYDROCHLORIDE
  19. LACTULOSE. [Concomitant]
     Active Substance: LACTULOSE
  20. SOFOSBUVIR 400MG GILEAD [Suspect]
     Active Substance: SOFOSBUVIR
     Indication: HEPATITIS C
     Route: 048
     Dates: start: 20160430
  21. PROPANOLOL [Concomitant]
     Active Substance: PROPRANOLOL HYDROCHLORIDE
  22. SENNA [Concomitant]
     Active Substance: SENNA LEAF\SENNOSIDES\SENNOSIDES A AND B
  23. ACETAMINOPHEN. [Concomitant]
     Active Substance: ACETAMINOPHEN

REACTIONS (9)
  - Biliary tract disorder [None]
  - Nausea [None]
  - Intentional product use issue [None]
  - Somnolence [None]
  - Pyrexia [None]
  - Incorrect dose administered [None]
  - Ammonia increased [None]
  - Asthenia [None]
  - Hepatic encephalopathy [None]

NARRATIVE: CASE EVENT DATE: 20160530
